FAERS Safety Report 7327020-1 (Version None)
Quarter: 2011Q1

REPORT INFORMATION
  Report Type: 
  Country: None (occurrence: None)
  Receive Date: 20110302
  Receipt Date: 20110221
  Transmission Date: 20110831
  Serious: Yes (Congenital Anomaly)
  Sender: FDA-Public Use
  Company Number: GB-ASTRAZENECA-2011SE09791

PATIENT
  Age: 0 Week
  Sex: Female
  Weight: 3.5 kg

DRUGS (5)
  1. CO-CODAMOL [Suspect]
     Indication: PAIN
     Dosage: 30/500, TWO TABLETS AS NEEDED
     Route: 064
  2. HYDROXOCOBALAMIN [Suspect]
     Indication: VITAMIN B12 DEFICIENCY
     Route: 064
  3. FOLIC ACID [Suspect]
     Indication: PREGNANCY
     Route: 064
  4. LYRICA [Suspect]
     Indication: PAIN
     Route: 064
  5. OMEPRAZOLE [Suspect]
     Indication: PROPHYLAXIS AGAINST GASTROINTESTINAL ULCER
     Route: 064

REACTIONS (3)
  - DRUG EXPOSURE DURING PREGNANCY [None]
  - PELVIC DEFORMITY [None]
  - HIP DYSPLASIA [None]
